FAERS Safety Report 10272943 (Version 1)
Quarter: 2014Q2

REPORT INFORMATION
  Report Type: Spontaneous
  Country: JP (occurrence: None)
  Receive Date: 20140627
  Receipt Date: 20140627
  Transmission Date: 20141212
  Serious: Yes (Death, Other)
  Sender: FDA-Public Use
  Company Number: 2014JP00578

PATIENT
  Age: 4 Year
  Sex: Male

DRUGS (6)
  1. CARBOPLATIN (CARBOPLATIN) INJECTION [Suspect]
     Indication: HEPATOBLASTOMA
     Route: 013
  2. CISPLATIN (CISPLATIN) [Suspect]
     Indication: HEPATOBLASTOMA
     Dosage: FOR 1 DAY REPEATED EVERY 4 WEEKS
     Route: 042
  3. TETRAHYDROPYRANYLADRIAMYCIN [Suspect]
     Indication: HEPATOBLASTOMA
     Route: 042
  4. ETOPOSIDE (ETOPOSIDE) [Suspect]
     Indication: HEPATOBLASTOMA
  5. LIPIDOL [Suspect]
     Indication: THERAPEUTIC EMBOLISATION
     Dosage: 3.6 UNK DOSE
  6. IFO (IFO) [Suspect]
     Indication: HEPATOBLASTOMA

REACTIONS (1)
  - Acute myeloid leukaemia [None]
